FAERS Safety Report 5492181-6 (Version None)
Quarter: 2007Q4

REPORT INFORMATION
  Report Type: 
  Country: None (occurrence: None)
  Receive Date: 20071022
  Receipt Date: 20071009
  Transmission Date: 20080405
  Serious: Yes (Death)
  Sender: FDA-Public Use
  Company Number: ES-ROCHE-524079

PATIENT

DRUGS (1)
  1. PEG-INTERFERON A-2A (RO 25-8310) [Suspect]
     Indication: HEPATITIS C VIRUS
     Route: 065
     Dates: start: 20041001

REACTIONS (1)
  - CEREBROVASCULAR ACCIDENT [None]
